FAERS Safety Report 18902486 (Version 2)
Quarter: 2021Q2

REPORT INFORMATION
  Report Type: Spontaneous
  Country: US (occurrence: US)
  Receive Date: 20210216
  Receipt Date: 20210427
  Transmission Date: 20210717
  Serious: Yes (Death, Hospitalization, Other)
  Sender: FDA-Public Use
  Company Number: US-INCYTE CORPORATION-2021IN001334

PATIENT

DRUGS (5)
  1. JAKAFI [Suspect]
     Active Substance: RUXOLITINIB
     Dosage: UNK
     Route: 065
  2. METHYLPREDNISOLONE. [Concomitant]
     Active Substance: METHYLPREDNISOLONE
     Indication: CHRONIC GRAFT VERSUS HOST DISEASE IN INTESTINE
     Route: 065
  3. JAKAFI [Suspect]
     Active Substance: RUXOLITINIB
     Indication: ACUTE GRAFT VERSUS HOST DISEASE
     Dosage: UNK
     Route: 065
     Dates: start: 20200630
  4. JAKAFI [Suspect]
     Active Substance: RUXOLITINIB
     Dosage: 5 MILLIGRAM, QD
     Route: 048
     Dates: start: 20200704
  5. TACROLIMUS. [Concomitant]
     Active Substance: TACROLIMUS
     Indication: CHRONIC GRAFT VERSUS HOST DISEASE IN INTESTINE
     Route: 065

REACTIONS (29)
  - Pulmonary haemorrhage [Unknown]
  - Pneumatosis [Unknown]
  - Laryngeal inflammation [Unknown]
  - Off label use [Unknown]
  - Bronchopulmonary aspergillosis [Fatal]
  - Skin hypopigmentation [Unknown]
  - Skin hyperpigmentation [Unknown]
  - Blood glucose increased [Unknown]
  - Aspartate aminotransferase increased [Unknown]
  - Pneumonia [Unknown]
  - Pulmonary function test abnormal [Unknown]
  - Lymphadenopathy [Unknown]
  - Alopecia [Unknown]
  - Fat tissue decreased [Unknown]
  - Ecchymosis [Unknown]
  - Alanine aminotransferase increased [Unknown]
  - General physical condition abnormal [Unknown]
  - Actinomyces test positive [Unknown]
  - Bronchoalveolar lavage abnormal [Unknown]
  - Dyspnoea [Unknown]
  - Cholelithiasis [Unknown]
  - Ulcer [Unknown]
  - Laryngeal mass [Unknown]
  - Post transplant lymphoproliferative disorder [Recovered/Resolved]
  - Diffuse alveolar damage [Fatal]
  - Respiratory failure [Fatal]
  - Thrombocytopenia [Recovering/Resolving]
  - Metabolic acidosis [Unknown]
  - Pulmonary mass [Unknown]

NARRATIVE: CASE EVENT DATE: 20200630
